FAERS Safety Report 25359058 (Version 1)
Quarter: 2025Q2

REPORT INFORMATION
  Report Type: Spontaneous
  Country: FR (occurrence: FR)
  Receive Date: 20250526
  Receipt Date: 20250526
  Transmission Date: 20250717
  Serious: Yes (Hospitalization)
  Sender: MYLAN
  Company Number: None

PATIENT
  Age: 87 Year
  Sex: Female
  Weight: 75.4 kg

DRUGS (12)
  1. LYRICA [Suspect]
     Active Substance: PREGABALIN
     Indication: Product used for unknown indication
     Dosage: 75 MILLIGRAM, QD (LONG TERM)
     Dates: end: 20241224
  2. LYRICA [Suspect]
     Active Substance: PREGABALIN
     Dosage: 75 MILLIGRAM, QD (LONG TERM)
     Route: 048
     Dates: end: 20241224
  3. LYRICA [Suspect]
     Active Substance: PREGABALIN
     Dosage: 75 MILLIGRAM, QD (LONG TERM)
     Route: 048
     Dates: end: 20241224
  4. LYRICA [Suspect]
     Active Substance: PREGABALIN
     Dosage: 75 MILLIGRAM, QD (LONG TERM)
     Dates: end: 20241224
  5. LOXAPINE [Suspect]
     Active Substance: LOXAPINE
     Indication: Psychiatric disorder prophylaxis
     Dosage: 20 GTT DROPS, QD
     Dates: end: 20241224
  6. LOXAPINE [Suspect]
     Active Substance: LOXAPINE
     Dosage: 20 GTT DROPS, QD
     Route: 048
     Dates: end: 20241224
  7. LOXAPINE [Suspect]
     Active Substance: LOXAPINE
     Dosage: 20 GTT DROPS, QD
     Route: 048
     Dates: end: 20241224
  8. LOXAPINE [Suspect]
     Active Substance: LOXAPINE
     Dosage: 20 GTT DROPS, QD
     Dates: end: 20241224
  9. AKINETON [Suspect]
     Active Substance: BIPERIDEN HYDROCHLORIDE
     Indication: Parkinsonism
     Dosage: 4 MILLIGRAM, QD (LONG TERM)
     Dates: end: 20241224
  10. AKINETON [Suspect]
     Active Substance: BIPERIDEN HYDROCHLORIDE
     Dosage: 4 MILLIGRAM, QD (LONG TERM)
     Route: 048
     Dates: end: 20241224
  11. AKINETON [Suspect]
     Active Substance: BIPERIDEN HYDROCHLORIDE
     Dosage: 4 MILLIGRAM, QD (LONG TERM)
     Route: 048
     Dates: end: 20241224
  12. AKINETON [Suspect]
     Active Substance: BIPERIDEN HYDROCHLORIDE
     Dosage: 4 MILLIGRAM, QD (LONG TERM)
     Dates: end: 20241224

REACTIONS (1)
  - Resting tremor [Recovered/Resolved]

NARRATIVE: CASE EVENT DATE: 20241115
